FAERS Safety Report 16588965 (Version 1)
Quarter: 2019Q3

REPORT INFORMATION
  Report Type: Spontaneous
  Country: US (occurrence: US)
  Receive Date: 20190718
  Receipt Date: 20190718
  Transmission Date: 20191004
  Serious: No
  Sender: FDA-Public Use
  Company Number: US-JNJFOC-20190716125

PATIENT
  Sex: Female

DRUGS (1)
  1. MOTRIN [Suspect]
     Active Substance: IBUPROFEN
     Indication: FIBROMYALGIA
     Route: 065
     Dates: start: 1995

REACTIONS (1)
  - Gastric disorder [Unknown]

NARRATIVE: CASE EVENT DATE: 1995
